FAERS Safety Report 11930600 (Version 1)
Quarter: 2016Q1

REPORT INFORMATION
  Report Type: Spontaneous
  Country: US (occurrence: None)
  Receive Date: 20160119
  Receipt Date: 20160119
  Transmission Date: 20160526
  Serious: Yes (Disabling)
  Sender: FDA-Public Use
  Company Number: None

PATIENT
  Age: 75 Year
  Sex: Female
  Weight: 58.06 kg

DRUGS (11)
  1. MEDROL [Concomitant]
     Active Substance: METHYLPREDNISOLONE
  2. IBRANCE [Suspect]
     Active Substance: PALBOCICLIB
     Indication: BREAST CANCER METASTATIC
     Dosage: 1 PILL, ONCE DAILY, TAKEN BY MOUTH
     Route: 048
     Dates: start: 20151221, end: 20160106
  3. IBRANCE [Concomitant]
     Active Substance: PALBOCICLIB
  4. THYME TEA [Concomitant]
  5. SYNTHROID [Concomitant]
     Active Substance: LEVOTHYROXINE SODIUM
  6. FISH OIL [Concomitant]
     Active Substance: FISH OIL
  7. COD-LIVER OIL [Concomitant]
     Active Substance: FISH OIL
  8. VIT. D3 [Concomitant]
  9. MULTIVITAMIN [Concomitant]
     Active Substance: VITAMINS
  10. PROBIOTIC [Concomitant]
     Active Substance: PROBIOTICS NOS
  11. LEMON-GINGER TEA [Concomitant]

REACTIONS (11)
  - White blood cell count decreased [None]
  - Pain of skin [None]
  - Pruritus [None]
  - Cough [None]
  - Erythema [None]
  - Skin tightness [None]
  - Raynaud^s phenomenon [None]
  - Condition aggravated [None]
  - Peripheral swelling [None]
  - Red blood cell count decreased [None]
  - Dermatomyositis [None]

NARRATIVE: CASE EVENT DATE: 20160105
